FAERS Safety Report 4308935-5 (Version None)
Quarter: 2004Q1

REPORT INFORMATION
  Report Type: 
  Country: None (occurrence: None)
  Receive Date: 20040227
  Receipt Date: 20040217
  Transmission Date: 20041129
  Serious: Yes (Other)
  Sender: FDA-Public Use
  Company Number: JP-JNJFOC-20040204716

PATIENT
  Sex: 0

DRUGS (2)
  1. FENTANYL [Suspect]
     Dosage: TRANSDERMAL
     Route: 062
  2. IRINOTECAN HYDROCHLORIDE (IRINOTECAN HYDROCHLORIDE) [Suspect]
     Dosage: INTRAVENOUS DRIP
     Route: 041

REACTIONS (2)
  - DRUG INTERACTION [None]
  - SCHIZOPHRENIFORM DISORDER [None]
